FAERS Safety Report 7779350-7 (Version None)
Quarter: 2011Q3

REPORT INFORMATION
  Report Type: 
  Country: None (occurrence: None)
  Receive Date: 20110926
  Receipt Date: 20091002
  Transmission Date: 20111222
  Serious: Yes (Other)
  Sender: FDA-Public Use
  Company Number: PHHY2009TW68751

PATIENT

DRUGS (1)
  1. TASIGNA [Suspect]
     Indication: GASTROINTESTINAL STROMAL TUMOUR
     Dosage: 2 PILLS, TWICE PER DAY
     Route: 048

REACTIONS (6)
  - NEOPLASM MALIGNANT [None]
  - METASTASES TO LIVER [None]
  - MOOD ALTERED [None]
  - YELLOW SKIN [None]
  - GASTROINTESTINAL STROMAL TUMOUR [None]
  - METASTASES TO STOMACH [None]
